FAERS Safety Report 23917725 (Version 4)
Quarter: 2024Q3

REPORT INFORMATION
  Report Type: Report from Study
  Country: PL (occurrence: PL)
  Receive Date: 20240530
  Receipt Date: 20240930
  Transmission Date: 20241017
  Serious: Yes (Hospitalization, Other)
  Sender: GENMAB
  Company Number: PL-GENMAB-2024-01882

PATIENT
  Age: 43 Year
  Sex: Female
  Weight: 60 kg

DRUGS (21)
  1. EPCORITAMAB [Suspect]
     Active Substance: EPCORITAMAB
     Indication: Diffuse large B-cell lymphoma
     Dosage: LAST ADMIN DATE- APR 2024
     Route: 058
     Dates: start: 20240417, end: 202404
  2. EPCORITAMAB [Suspect]
     Active Substance: EPCORITAMAB
     Dosage: LAST ADMIN DATE- 2024
     Route: 058
     Dates: start: 20240424, end: 2024
  3. EPCORITAMAB [Suspect]
     Active Substance: EPCORITAMAB
     Dosage: 48 MILLIGRAM, LAST ADMIN DATE- MAY 2024
     Route: 058
     Dates: start: 20240501
  4. EPCORITAMAB [Suspect]
     Active Substance: EPCORITAMAB
     Dosage: LAST ADMIN DATE- MAY 2024
     Route: 058
     Dates: start: 20240508, end: 202405
  5. EPCORITAMAB [Suspect]
     Active Substance: EPCORITAMAB
     Dosage: LAST ADMIN DATE- MAY 2024
     Route: 058
     Dates: start: 20240515, end: 202405
  6. EPCORITAMAB [Suspect]
     Active Substance: EPCORITAMAB
     Dosage: LAST ADMIN DATE- MAY 2024
     Route: 058
     Dates: start: 20240522, end: 202405
  7. EPCORITAMAB [Suspect]
     Active Substance: EPCORITAMAB
     Dosage: LAST ADMIN DATE- 2024
     Route: 058
     Dates: start: 20240529, end: 2024
  8. EPCORITAMAB [Suspect]
     Active Substance: EPCORITAMAB
     Dosage: LAST ADMIN DATE- JUN 2024
     Route: 058
     Dates: start: 20240605, end: 202406
  9. EPCORITAMAB [Suspect]
     Active Substance: EPCORITAMAB
     Dosage: LAST ADMIN DATE- JUN 2024
     Route: 058
     Dates: start: 20240612, end: 202406
  10. EPCORITAMAB [Suspect]
     Active Substance: EPCORITAMAB
     Dosage: LAST ADMIN DATE- 2024
     Route: 058
     Dates: start: 20240619, end: 2024
  11. EPCORITAMAB [Suspect]
     Active Substance: EPCORITAMAB
     Dosage: LAST ADMIN DATE- 2024
     Route: 058
     Dates: start: 20240627, end: 2024
  12. VITAMINS [Concomitant]
     Active Substance: VITAMINS
     Indication: Fluid replacement
     Dosage: 3000 MILLILITER
     Route: 065
     Dates: start: 2024
  13. SOLU-MEDROL [Concomitant]
     Active Substance: METHYLPREDNISOLONE SODIUM SUCCINATE
     Indication: Cytokine release syndrome
     Dosage: 500 MILLIGRAM
     Route: 065
     Dates: start: 20240502, end: 20240503
  14. TOCILIZUMAB [Concomitant]
     Active Substance: TOCILIZUMAB
     Indication: Cytokine release syndrome
     Dosage: 400 MILLIGRAM 400 MILLIGRAM, FREQUENCY TEXT: AT 9 PM, STOP DATE MAY 2024
     Route: 042
     Dates: start: 20240502, end: 202405
  15. TOCILIZUMAB [Concomitant]
     Active Substance: TOCILIZUMAB
     Dosage: 400 MILLIGRAM 400 MILLIGRAM, FREQUENCY TEXT: AT 5 AM
     Route: 042
     Dates: start: 20240503
  16. GEMCITABINE HYDROCHLORIDE [Concomitant]
     Active Substance: GEMCITABINE HYDROCHLORIDE
     Indication: Salvage therapy
     Dosage: UNK
     Route: 065
     Dates: start: 20240422
  17. GEMCITABINE HYDROCHLORIDE [Concomitant]
     Active Substance: GEMCITABINE HYDROCHLORIDE
     Dosage: LAST ADMIN DATE- APR 2024
     Route: 065
     Dates: start: 20240419, end: 202404
  18. HYDROCORTISONE ACETATE [Concomitant]
     Active Substance: HYDROCORTISONE ACETATE
     Indication: Product used for unknown indication
     Dosage: 30 MILLIGRAM
     Route: 048
  19. DEXAMETHASONE [Concomitant]
     Active Substance: DEXAMETHASONE
     Indication: Cytokine release syndrome
     Dosage: UNK
     Route: 042
     Dates: start: 202404
  20. DEXAMETHASONE [Concomitant]
     Active Substance: DEXAMETHASONE
     Dosage: 8 MILLIGRAM
     Route: 042
     Dates: start: 20240503
  21. DEXAMETHASONE [Concomitant]
     Active Substance: DEXAMETHASONE
     Dosage: 15 MILLIGRAM
     Route: 042
     Dates: start: 20240502, end: 20240505

REACTIONS (21)
  - Breast neoplasm [Unknown]
  - Bone neoplasm [Unknown]
  - Hypoxia [Recovered/Resolved]
  - Hypotension [Recovered/Resolved]
  - Malignant neoplasm progression [Unknown]
  - Neoplasm progression [Unknown]
  - Respiratory failure [Unknown]
  - Lymphoma [Unknown]
  - Neoplasm progression [Unknown]
  - Fatigue [Recovered/Resolved]
  - Tachycardia [Recovered/Resolved]
  - Headache [Recovered/Resolved]
  - Cytokine release syndrome [Unknown]
  - Pyrexia [Recovered/Resolved]
  - Feeling hot [Unknown]
  - Blood lactate dehydrogenase increased [Unknown]
  - Bacteraemia [Recovered/Resolved]
  - Inflammatory marker decreased [Recovered/Resolved]
  - Feeling hot [Unknown]
  - Headache [Unknown]
  - Pyrexia [Recovered/Resolved]

NARRATIVE: CASE EVENT DATE: 20240101
